FAERS Safety Report 9447548 (Version 1)
Quarter: 2013Q3

REPORT INFORMATION
  Report Type: Spontaneous
  Country: CA (occurrence: None)
  Receive Date: 20130805
  Receipt Date: 20130805
  Transmission Date: 20140515
  Serious: Yes (Other)
  Sender: FDA-Public Use
  Company Number: FK201302805

PATIENT
  Age: 30 Year
  Sex: Female

DRUGS (16)
  1. CLINDAMYCIN [Suspect]
     Indication: HAEMOPHILUS INFECTION
  2. CLINDAMYCIN [Suspect]
     Indication: ALPHA HAEMOLYTIC STREPTOCOCCAL INFECTION
  3. CEFAZOLIN [Suspect]
     Indication: HAEMOPHILUS INFECTION
  4. CEFAZOLIN [Suspect]
  5. VANCOMYCIN [Suspect]
     Indication: HAEMOPHILUS INFECTION
  6. VANCOMYCIN [Suspect]
     Indication: ALPHA HAEMOLYTIC STREPTOCOCCAL INFECTION
  7. PIPERACILLIN/TAZOBACTAM [Concomitant]
  8. CEFTRIAXONE FOR INJECTION (CEFTRIAZONE SODIUM) [Concomitant]
  9. METRONIDAZOLE (METRONIDAZOLE) [Concomitant]
  10. TRIAMCINOLONE (TRIAMCINOLONE) [Concomitant]
  11. MINOCYCLINE (MINOCYCLINE) [Concomitant]
  12. AMIKACIN (AMIKACIN) [Concomitant]
  13. ACETAMINOPHEN (PARACETAMOL) [Concomitant]
  14. CEPHALEXIN (CEFALEXIN) [Concomitant]
  15. PREDNISONE (PREDNISONE) [Concomitant]
  16. DEFLAZACOT (DEFLAZACORT) [Concomitant]

REACTIONS (4)
  - Red man syndrome [None]
  - Hypersensitivity [None]
  - Somnolence [None]
  - Exposure during pregnancy [None]
